FAERS Safety Report 4420922-5 (Version None)
Quarter: 2004Q3

REPORT INFORMATION
  Report Type: 
  Country: None (occurrence: None)
  Receive Date: 20040809
  Receipt Date: 20040728
  Transmission Date: 20050211
  Serious: Yes (Death, Hospitalization)
  Sender: FDA-Public Use
  Company Number: ES-JNJFOC-20040707300

PATIENT
  Sex: Female

DRUGS (4)
  1. REMICADE [Suspect]
     Indication: RHEUMATOID ARTHRITIS
     Route: 042
  2. METHOTREXATE [Concomitant]
  3. STEROIDS [Concomitant]
  4. IBUPROFEN [Concomitant]

REACTIONS (2)
  - LEUKAEMIA PLASMACYTIC [None]
  - VENTRICULAR FIBRILLATION [None]
